FAERS Safety Report 25043309 (Version 1)
Quarter: 2025Q1

REPORT INFORMATION
  Report Type: Spontaneous
  Country: MX (occurrence: MX)
  Receive Date: 20250305
  Receipt Date: 20250305
  Transmission Date: 20250409
  Serious: Yes (Other)
  Sender: ALEXION PHARMACEUTICALS
  Company Number: MX-ASTRAZENECA-202502MEX026719MX

PATIENT
  Age: 82 Year

DRUGS (1)
  1. CALQUENCE [Suspect]
     Active Substance: ACALABRUTINIB
     Indication: B-cell small lymphocytic lymphoma
     Route: 065

REACTIONS (3)
  - Ecchymosis [Unknown]
  - Hypogammaglobulinaemia [Recovered/Resolved]
  - Pneumonia [Recovered/Resolved]
